FAERS Safety Report 8811833 (Version 1)
Quarter: 2012Q4

REPORT INFORMATION
  Report Type: 
  Country: FR (occurrence: FR)
  Receive Date: 20120927
  Receipt Date: 20120927
  Transmission Date: 20130627
  Serious: Yes (Hospitalization)
  Sender: FDA-Public Use
  Company Number: FR-GLAXOSMITHKLINE-B0830914A

PATIENT
  Age: 52 Year
  Sex: Male

DRUGS (1)
  1. IMIJECT [Suspect]
     Indication: PRODUCT USED FOR UNKNOWN INDICATION
     Dosage: 6MG Four times per day
     Route: 058
     Dates: start: 20110115, end: 20110309

REACTIONS (9)
  - Confusional state [Recovered/Resolved]
  - Abnormal behaviour [Recovered/Resolved]
  - Incoherent [Recovered/Resolved]
  - Irritability [Recovered/Resolved]
  - Amnesia [Recovered/Resolved]
  - Movement disorder [Recovered/Resolved]
  - Pain [Recovered/Resolved]
  - Pyrexia [Recovered/Resolved]
  - Overdose [Unknown]
